FAERS Safety Report 8290872-5 (Version None)
Quarter: 2012Q2

REPORT INFORMATION
  Report Type: 
  Country: None (occurrence: None)
  Receive Date: 20120417
  Receipt Date: 20110620
  Transmission Date: 20120825
  Serious: No
  Sender: FDA-Public Use
  Company Number: US-ASTRAZENECA-2011SE37538

PATIENT
  Age: 61 Year
  Sex: Female

DRUGS (3)
  1. VICODIN [Concomitant]
  2. NEXIUM [Suspect]
     Route: 048
  3. V-12 INJECTIONS [Concomitant]

REACTIONS (2)
  - MALAISE [None]
  - INCORRECT DOSE ADMINISTERED [None]
